FAERS Safety Report 4537321-8 (Version None)
Quarter: 2004Q4

REPORT INFORMATION
  Report Type: 
  Country: None (occurrence: None)
  Receive Date: 20041221
  Receipt Date: 20041206
  Transmission Date: 20050328
  Serious: Yes (Hospitalization)
  Sender: FDA-Public Use
  Company Number: 2004BI000874

PATIENT
  Age: 45 Year
  Sex: Female
  Weight: 70.3075 kg

DRUGS (1)
  1. AVONEX [Suspect]
     Indication: MULTIPLE SCLEROSIS
     Dosage: 30 UG; QW, IM
     Route: 030
     Dates: start: 19971201, end: 20031101

REACTIONS (5)
  - ASTHENIA [None]
  - GASTROINTESTINAL NEOPLASM [None]
  - HAEMATOCHEZIA [None]
  - INFECTION [None]
  - MUSCLE ATROPHY [None]
